FAERS Safety Report 4639524-0 (Version None)
Quarter: 2005Q2

REPORT INFORMATION
  Report Type: 
  Country: None (occurrence: None)
  Receive Date: 20050419
  Receipt Date: 20050309
  Transmission Date: 20051028
  Serious: Yes (Death)
  Sender: FDA-Public Use
  Company Number: 200213561GDS

PATIENT
  Age: 33 Year
  Sex: Female

DRUGS (3)
  1. ACETAMINOPHEN [Suspect]
     Indication: INTENTIONAL MISUSE
  2. ASPIRIN [Suspect]
     Indication: INTENTIONAL MISUSE
  3. ACETAMINOPHEN/PSEUDOEPHEDRINE/DEXTROMETHORPHAN [Suspect]
     Indication: INTENTIONAL MISUSE

REACTIONS (6)
  - HEPATIC TRAUMA [None]
  - INTENTIONAL MISUSE [None]
  - MENTAL STATUS CHANGES [None]
  - METABOLIC ACIDOSIS [None]
  - MULTIPLE DRUG OVERDOSE [None]
  - RENAL FAILURE [None]
